FAERS Safety Report 5980109-1 (Version None)
Quarter: 2008Q4

REPORT INFORMATION
  Report Type: 
  Country: None (occurrence: None)
  Receive Date: 20081205
  Receipt Date: 20081128
  Transmission Date: 20090506
  Serious: Yes (Hospitalization, Other)
  Sender: FDA-Public Use
  Company Number: US-AMGEN-QUU321161

PATIENT
  Sex: Female

DRUGS (6)
  1. ENBREL [Suspect]
     Indication: PSORIASIS
  2. LEXAPRO [Concomitant]
  3. LOZOL [Concomitant]
  4. COZAAR [Concomitant]
  5. ZYRTEC [Concomitant]
  6. ALLERGY MEDICATION [Concomitant]

REACTIONS (6)
  - DYSPNOEA [None]
  - FALL [None]
  - HEPATIC ENZYME INCREASED [None]
  - NAUSEA [None]
  - NUCLEAR MAGNETIC RESONANCE IMAGING BRAIN ABNORMAL [None]
  - SYNCOPE [None]
